FAERS Safety Report 14037293 (Version 1)
Quarter: 2017Q4

REPORT INFORMATION
  Report Type: Report from Study
  Country: US (occurrence: US)
  Receive Date: 20171004
  Receipt Date: 20171004
  Transmission Date: 20180321
  Serious: Yes (Disabling)
  Sender: FDA-Public Use
  Company Number: US-AMGEN-USASL2017148085

PATIENT
  Age: 40 Year
  Sex: Male

DRUGS (1)
  1. ENBREL [Suspect]
     Active Substance: ETANERCEPT
     Indication: PSORIATIC ARTHROPATHY
     Dosage: 60 MG, QWK
     Route: 065
     Dates: start: 201504

REACTIONS (7)
  - Respiratory tract congestion [Not Recovered/Not Resolved]
  - Sinusitis [Recovering/Resolving]
  - Off label use [Unknown]
  - Pain [Unknown]
  - Pyrexia [Unknown]
  - Nasal congestion [Not Recovered/Not Resolved]
  - Injection site erythema [Unknown]

NARRATIVE: CASE EVENT DATE: 201504
